FAERS Safety Report 24889210 (Version 1)
Quarter: 2025Q1

REPORT INFORMATION
  Report Type: Report from Study
  Country: US (occurrence: US)
  Receive Date: 20250127
  Receipt Date: 20250127
  Transmission Date: 20250409
  Serious: Yes (Other)
  Sender: ROCHE
  Company Number: US-ROCHE-3574323

PATIENT
  Age: 36 Year
  Sex: Female
  Weight: 83.91 kg

DRUGS (3)
  1. ENSPRYNG [Suspect]
     Active Substance: SATRALIZUMAB-MWGE
     Indication: Neuromyelitis optica spectrum disorder
     Dosage: STOP DATE APR-2024,  INJECT 120 MG ON WEEK 0, 2 AND 4 ,THEN EVERY 4 WEEKS
     Route: 058
     Dates: start: 2022
  2. ENSPRYNG [Suspect]
     Active Substance: SATRALIZUMAB-MWGE
     Indication: Demyelination
     Route: 058
     Dates: start: 202203, end: 20240520
  3. ENSPRYNG [Suspect]
     Active Substance: SATRALIZUMAB-MWGE

REACTIONS (6)
  - Maternal exposure before pregnancy [Unknown]
  - Maternal exposure during pregnancy [Unknown]
  - Dermatitis [Recovering/Resolving]
  - Pain [Not Recovered/Not Resolved]
  - Gait disturbance [Recovered/Resolved]
  - Blindness unilateral [Unknown]

NARRATIVE: CASE EVENT DATE: 20240601
